FAERS Safety Report 8562164 (Version 3)
Quarter: 2014Q2

REPORT INFORMATION
  Report Type: Spontaneous
  Country: US (occurrence: US)
  Receive Date: 20120515
  Receipt Date: 20140530
  Transmission Date: 20141212
  Serious: Yes (Hospitalization, Other)
  Sender: FDA-Public Use
  Company Number: US-BAYER-2012-045880

PATIENT
  Age: 18 Year
  Sex: Female

DRUGS (17)
  1. YAZ [Suspect]
     Dosage: UNK
     Dates: start: 2007
  2. YASMIN [Suspect]
  3. XOPENEX [Concomitant]
  4. OXYGEN [Concomitant]
     Dosage: 2 L
     Route: 045
  5. I.V. SOLUTIONS [Concomitant]
  6. ASPIRIN [Concomitant]
  7. NITROGLYCERIN [Concomitant]
     Route: 060
  8. SYNTHROID [Concomitant]
     Dosage: 0.150 MG, 2 TABLETS, DAILY
     Route: 048
  9. PREVACID [Concomitant]
     Dosage: 30 MG, 1 CAPSULE, OM
  10. SINGULAIR [Concomitant]
     Dosage: 10 MG, 1 TABLET, DAILY
     Route: 048
  11. ZYRTEC [Concomitant]
     Dosage: 10 MG, 1 TABLET, EVERY NIGHT
     Route: 048
  12. ABILIFY [Concomitant]
     Dosage: 10 MG, 2 TABLETS, EVERY NIGHT
     Route: 048
  13. TOPAMAX [Concomitant]
     Dosage: 100 MG, 1 TABLET, BID
     Route: 048
  14. WELLBUTRIN [Concomitant]
  15. PROAIR HFA [Concomitant]
  16. VASOTON [Concomitant]
  17. BUDEPRION [Concomitant]
     Dosage: UNK
     Dates: start: 20080904

REACTIONS (11)
  - Pulmonary embolism [Recovered/Resolved]
  - Deep vein thrombosis [None]
  - Cholecystitis [None]
  - Injury [None]
  - Pain [Recovered/Resolved]
  - Emotional distress [None]
  - Anxiety [None]
  - Fear [None]
  - Anhedonia [None]
  - Quality of life decreased [Recovered/Resolved]
  - Pain [None]
